FAERS Safety Report 5218464-2 (Version None)
Quarter: 2007Q1

REPORT INFORMATION
  Report Type: 
  Country: None (occurrence: None)
  Receive Date: 20061201
  Receipt Date: 20060328
  Transmission Date: 20070707
  Serious: Yes (Death)
  Sender: FDA-Public Use
  Company Number: SUS1-2006-00152

PATIENT
  Age: 17 Year
  Sex: Male
  Weight: 140.6 kg

DRUGS (2)
  1. ADDERALL XR 10 [Suspect]
     Indication: ATTENTION DEFICIT/HYPERACTIVITY DISORDER
     Dosage: 30 MG DAILY
     Dates: start: 20050314, end: 20050329
  2. LIBRIUM [Concomitant]

REACTIONS (1)
  - SUDDEN DEATH [None]
